FAERS Safety Report 15269233 (Version 3)
Quarter: 2019Q1

REPORT INFORMATION
  Report Type: Spontaneous
  Country: GB (occurrence: GB)
  Receive Date: 20180813
  Receipt Date: 20190118
  Transmission Date: 20190417
  Serious: Yes (Other)
  Sender: FDA-Public Use
  Company Number: GB-ROCHE-2168766

PATIENT
  Age: 58 Year
  Sex: Male
  Weight: 65 kg

DRUGS (11)
  1. ADALAT CC [Concomitant]
     Active Substance: NIFEDIPINE
     Indication: BLOOD PRESSURE MEASUREMENT
     Route: 048
     Dates: start: 20170513
  2. CINACALCET. [Concomitant]
     Active Substance: CINACALCET
     Indication: HYPERPARATHYROIDISM
     Route: 048
     Dates: start: 20170914
  3. WARFARIN [Concomitant]
     Active Substance: WARFARIN
     Route: 065
     Dates: start: 201805
  4. LANSOPRAZOLE. [Concomitant]
     Active Substance: LANSOPRAZOLE
     Route: 065
     Dates: start: 201805
  5. ADVAGRAF [Concomitant]
     Active Substance: TACROLIMUS
     Indication: RENAL TRANSPLANT
     Dosage: DOSE AND UNIT: VARIABLE
     Route: 048
     Dates: start: 2002
  6. PREDNISOLONE. [Concomitant]
     Active Substance: PREDNISOLONE
     Indication: RENAL TRANSPLANT
     Dosage: DOSE AND UNIT: VARIABLE
     Route: 048
     Dates: start: 2002
  7. SPIRONOLACTONE. [Concomitant]
     Active Substance: SPIRONOLACTONE
     Route: 048
     Dates: start: 20170818
  8. COPEGUS [Suspect]
     Active Substance: RIBAVIRIN
     Indication: HEPATITIS E
     Route: 048
  9. ATORVASTATIN [Concomitant]
     Active Substance: ATORVASTATIN
     Route: 065
     Dates: start: 2012
  10. FUROSEMIDE. [Concomitant]
     Active Substance: FUROSEMIDE
     Indication: OEDEMA
     Route: 048
     Dates: start: 20170615
  11. MIRCERA [Concomitant]
     Active Substance: METHOXY POLYETHYLENE GLYCOL-EPOETIN BETA
     Indication: ILL-DEFINED DISORDER
     Route: 065

REACTIONS (2)
  - Blood uric acid increased [Recovering/Resolving]
  - Pain [Recovering/Resolving]

NARRATIVE: CASE EVENT DATE: 201808
